FAERS Safety Report 8494273-6 (Version None)
Quarter: 2012Q3

REPORT INFORMATION
  Report Type: 
  Country: None (occurrence: None)
  Receive Date: 20120709
  Receipt Date: 20120706
  Transmission Date: 20120928
  Serious: Yes (Death, Hospitalization, Other)
  Sender: FDA-Public Use
  Company Number: PHHY2012JP054796

PATIENT
  Age: 75 Year
  Sex: Male

DRUGS (2)
  1. ZOMETA [Suspect]
     Indication: METASTASES TO BONE
     Dosage: UNK
     Route: 041
     Dates: start: 20090601, end: 20110101
  2. ANAESTHETICS [Concomitant]
     Dosage: UNK

REACTIONS (8)
  - GENERAL PHYSICAL HEALTH DETERIORATION [None]
  - TOOTHACHE [None]
  - EXPOSED BONE IN JAW [None]
  - ABSCESS [None]
  - NEOPLASM PROGRESSION [None]
  - NEOPLASM MALIGNANT [None]
  - OSTEONECROSIS OF JAW [None]
  - SWELLING [None]
